FAERS Safety Report 18044597 (Version 1)
Quarter: 2020Q3

REPORT INFORMATION
  Report Type: Report from Study
  Country: US (occurrence: US)
  Receive Date: 20200720
  Receipt Date: 20200720
  Transmission Date: 20201103
  Serious: Yes (Hospitalization)
  Sender: FDA-Public Use
  Company Number: US-JNJFOC-20200716639

PATIENT
  Age: 31 Year
  Sex: Female

DRUGS (2)
  1. SIMPONI [Suspect]
     Active Substance: GOLIMUMAB
     Indication: COLITIS ULCERATIVE
     Dosage: STRENGTH 100 MG/MK
     Route: 058
     Dates: start: 20200610
  2. SIMPONI [Suspect]
     Active Substance: GOLIMUMAB

REACTIONS (3)
  - Renal disorder [Unknown]
  - Oedematous kidney [Unknown]
  - Klebsiella infection [Unknown]

NARRATIVE: CASE EVENT DATE: 20200615
